FAERS Safety Report 5575006-X (Version None)
Quarter: 2007Q4

REPORT INFORMATION
  Report Type: 
  Country: None (occurrence: None)
  Receive Date: 20071227
  Receipt Date: 20071221
  Transmission Date: 20080405
  Serious: Yes (Other)
  Sender: FDA-Public Use
  Company Number: CA-ASTRAZENECA-2007UW28825

PATIENT
  Age: 8 Month
  Sex: Male
  Weight: 5.4 kg

DRUGS (1)
  1. LOSEC I.V. [Suspect]
     Dosage: 2.5 ML (5 MG)
     Route: 048

REACTIONS (2)
  - CHOKING [None]
  - RESPIRATORY ARREST [None]
